FAERS Safety Report 5291750-6 (Version None)
Quarter: 2007Q2

REPORT INFORMATION
  Report Type: 
  Country: None (occurrence: None)
  Receive Date: 20070410
  Receipt Date: 20070329
  Transmission Date: 20071010
  Serious: Yes (Other)
  Sender: FDA-Public Use
  Company Number: US-ELI_LILLY_AND_COMPANY-US200704000569

PATIENT
  Age: 18 Year
  Sex: Female

DRUGS (4)
  1. ZYPREXA [Suspect]
     Indication: SCHIZOPHRENIA, PARANOID TYPE
     Dosage: 20 MG, UNK
  2. CYMBALTA [Suspect]
     Indication: SCHIZOPHRENIA, PARANOID TYPE
     Dosage: 60 MG, UNK
  3. LAMICTAL [Concomitant]
  4. GEODON [Concomitant]

REACTIONS (2)
  - ADENOMA BENIGN [None]
  - BLOOD PROLACTIN INCREASED [None]
